FAERS Safety Report 9757199 (Version 2)
Quarter: 2013Q4

REPORT INFORMATION
  Report Type: Report from Study
  Country: US (occurrence: US)
  Receive Date: 20131213
  Receipt Date: 20131213
  Transmission Date: 20140711
  Serious: Yes (Other)
  Sender: FDA-Public Use
  Company Number: US-ABBVIE-13P-163-1173263-00

PATIENT
  Age: 13 Year
  Sex: Male

DRUGS (4)
  1. HUMIRA [Suspect]
     Indication: CROHN^S DISEASE
     Dates: start: 201111
  2. NEXIUM [Concomitant]
     Indication: GASTROOESOPHAGEAL REFLUX DISEASE
     Dosage: DAILY
  3. SINGULAIR [Concomitant]
     Indication: ASTHMA
     Dosage: DAILY
  4. INHALER [Concomitant]
     Indication: ASTHMA

REACTIONS (13)
  - Intestinal stenosis [Recovered/Resolved]
  - Crohn^s disease [Recovered/Resolved]
  - Joint effusion [Unknown]
  - Fatigue [Unknown]
  - Gastroenteritis viral [Unknown]
  - Product quality issue [Unknown]
  - Fatigue [Not Recovered/Not Resolved]
  - Haematochezia [Not Recovered/Not Resolved]
  - Malaise [Not Recovered/Not Resolved]
  - Iron deficiency [Unknown]
  - Anorectal disorder [Not Recovered/Not Resolved]
  - Irritable bowel syndrome [Not Recovered/Not Resolved]
  - Crohn^s disease [Not Recovered/Not Resolved]
